FAERS Safety Report 8182400-X (Version None)
Quarter: 2012Q1

REPORT INFORMATION
  Report Type: 
  Country: None (occurrence: None)
  Receive Date: 20120304
  Receipt Date: 20120229
  Transmission Date: 20120608
  Serious: Yes (Hospitalization, Other)
  Sender: FDA-Public Use
  Company Number: US-ABBOTT-12P-163-0895129-00

PATIENT
  Sex: Female
  Weight: 107.6 kg

DRUGS (4)
  1. HUMIRA [Suspect]
     Route: 058
     Dates: start: 20111201, end: 20120101
  2. HUMIRA [Suspect]
     Route: 058
     Dates: start: 20110101, end: 20111101
  3. HUMIRA [Suspect]
     Indication: CROHN'S DISEASE
     Route: 058
     Dates: start: 20070101, end: 20110101
  4. HUMIRA [Suspect]

REACTIONS (4)
  - LIMB OPERATION [None]
  - ARTHROPATHY [None]
  - ADHESION [None]
  - STAPHYLOCOCCAL INFECTION [None]
